FAERS Safety Report 11430788 (Version 1)
Quarter: 2015Q3

REPORT INFORMATION
  Report Type: Spontaneous
  Country: US (occurrence: US)
  Receive Date: 20150828
  Receipt Date: 20150828
  Transmission Date: 20151125
  Serious: No
  Sender: FDA-Public Use
  Company Number: US-ROCHE-1186500

PATIENT
  Age: 54 Year
  Sex: Female
  Weight: 76.27 kg

DRUGS (4)
  1. RIBASPHERE [Suspect]
     Active Substance: RIBAVIRIN
     Dosage: DOSE MODIFICATION DECREASED TO 400 MG
     Route: 048
     Dates: start: 20130128
  2. PEGASYS [Suspect]
     Active Substance: PEGINTERFERON ALFA-2A
     Indication: CHRONIC HEPATITIS C
     Route: 058
     Dates: start: 20121116
  3. RIBASPHERE [Suspect]
     Active Substance: RIBAVIRIN
     Indication: CHRONIC HEPATITIS C
     Dosage: DIVIDED DOSE
     Route: 048
     Dates: start: 20121116
  4. BOCEPREVIR [Suspect]
     Active Substance: BOCEPREVIR
     Indication: CHRONIC HEPATITIS C
     Route: 048
     Dates: start: 20121221

REACTIONS (10)
  - Vertigo [Unknown]
  - Abdominal pain [Unknown]
  - Candida infection [Unknown]
  - Blood pressure increased [Unknown]
  - Oedema peripheral [Unknown]
  - Nausea [Unknown]
  - Headache [Unknown]
  - Face oedema [Unknown]
  - Muscle spasms [Unknown]
  - Weight increased [Unknown]

NARRATIVE: CASE EVENT DATE: 20130121
